FAERS Safety Report 7676754-8 (Version None)
Quarter: 2011Q3

REPORT INFORMATION
  Report Type: 
  Country: None (occurrence: None)
  Receive Date: 20110811
  Receipt Date: 20110802
  Transmission Date: 20111222
  Serious: Yes (Other)
  Sender: FDA-Public Use
  Company Number: JP-JNJFOC-20110804199

PATIENT

DRUGS (1)
  1. NIZORAL [Suspect]
     Indication: SEBORRHOEIC DERMATITIS
     Route: 061

REACTIONS (1)
  - LEUKODERMA [None]
